FAERS Safety Report 15937612 (Version 2)
Quarter: 2019Q3

REPORT INFORMATION
  Report Type: Spontaneous
  Country: US (occurrence: US)
  Receive Date: 20190208
  Receipt Date: 20190819
  Transmission Date: 20191004
  Serious: Yes (Other)
  Sender: FDA-Public Use
  Company Number: US-MYLANLABS-2019M1008182

PATIENT
  Age: 48 Year
  Sex: Male
  Weight: 92.99 kg

DRUGS (2)
  1. ZOLOFT [Concomitant]
     Active Substance: SERTRALINE HYDROCHLORIDE
  2. PREDNISONE. [Suspect]
     Active Substance: PREDNISONE
     Indication: PRODUCT USED FOR UNKNOWN INDICATION
     Dosage: UNK

REACTIONS (5)
  - Pulmonary fibrosis [Unknown]
  - Ill-defined disorder [Unknown]
  - Dyspnoea [Unknown]
  - Dyspepsia [Unknown]
  - Weight increased [Unknown]
